FAERS Safety Report 13237993 (Version 1)
Quarter: 2017Q1

REPORT INFORMATION
  Report Type: Spontaneous
  Country: US (occurrence: US)
  Receive Date: 20170215
  Receipt Date: 20170215
  Transmission Date: 20170428
  Serious: No
  Sender: FDA-Public Use
  Company Number: None

PATIENT
  Age: 8 Year
  Sex: Male
  Weight: 26.55 kg

DRUGS (3)
  1. PRILOCEC [Concomitant]
  2. POLYETHYLENE GLYCOL 3350 POWDER KREMERIS URBAN PHARMACEUTICAL [Suspect]
     Active Substance: POLYETHYLENE GLYCOL 3350
     Indication: CONSTIPATION
     Dosage: 2 CAPFULS ORAL
     Route: 048
     Dates: start: 20170119, end: 20170215
  3. MULTI VITAMIN [Concomitant]
     Active Substance: VITAMINS

REACTIONS (3)
  - Anxiety [None]
  - Social avoidant behaviour [None]
  - Educational problem [None]

NARRATIVE: CASE EVENT DATE: 20170201
